FAERS Safety Report 5146924-1 (Version None)
Quarter: 2006Q4

REPORT INFORMATION
  Report Type: 
  Country: None (occurrence: None)
  Receive Date: 20061107
  Receipt Date: 20061107
  Transmission Date: 20070319
  Serious: No
  Sender: FDA-Public Use
  Company Number: None

PATIENT
  Sex: Female
  Weight: 94.2 kg

DRUGS (1)
  1. TAXOL [Suspect]
     Dosage: 308 MG
     Dates: start: 20030107, end: 20030114

REACTIONS (2)
  - INFUSION RELATED REACTION [None]
  - SINUS BRADYCARDIA [None]
